FAERS Safety Report 16472145 (Version 1)
Quarter: 2019Q2

REPORT INFORMATION
  Report Type: Spontaneous
  Country: US (occurrence: US)
  Receive Date: 20190625
  Receipt Date: 20190625
  Transmission Date: 20190711
  Serious: Yes (Other)
  Sender: FDA-Public Use
  Company Number: US-009507513-1906USA008032

PATIENT
  Age: 58 Year
  Sex: Male

DRUGS (1)
  1. KEYTRUDA [Suspect]
     Active Substance: PEMBROLIZUMAB
     Indication: SKIN CANCER METASTATIC
     Dosage: UNK

REACTIONS (2)
  - Product use in unapproved indication [Unknown]
  - Paraneoplastic neurological syndrome [Unknown]
